FAERS Safety Report 13718419 (Version 3)
Quarter: 2017Q4

REPORT INFORMATION
  Report Type: Spontaneous
  Country: FI (occurrence: FI)
  Receive Date: 20170705
  Receipt Date: 20171201
  Transmission Date: 20180320
  Serious: Yes (Death, Life-Threatening)
  Sender: FDA-Public Use
  Company Number: FI-JNJFOC-20170702124

PATIENT
  Age: 83 Year
  Sex: Female

DRUGS (5)
  1. SINEMET [Concomitant]
     Active Substance: CARBIDOPA\LEVODOPA
     Route: 065
  2. DENOSUMAB [Concomitant]
     Active Substance: DENOSUMAB
     Route: 065
  3. KALCIPOS [Concomitant]
     Active Substance: CALCIUM CARBONATE
     Route: 065
  4. CARBIDOPA W/LEVODOPA [Concomitant]
     Active Substance: CARBIDOPA\LEVODOPA
     Route: 065
  5. XARELTO [Suspect]
     Active Substance: RIVAROXABAN
     Indication: ATRIAL FIBRILLATION
     Route: 048
     Dates: start: 201606

REACTIONS (5)
  - Loss of consciousness [Fatal]
  - Pain [Fatal]
  - Cerebral haemorrhage [Fatal]
  - Hemiplegia [Fatal]
  - Pyrexia [Fatal]

NARRATIVE: CASE EVENT DATE: 20170628
